FAERS Safety Report 23560994 (Version 1)
Quarter: 2024Q1

REPORT INFORMATION
  Report Type: Spontaneous
  Country: US (occurrence: US)
  Receive Date: 20240224
  Receipt Date: 20240224
  Transmission Date: 20240410
  Serious: Yes (Other)
  Sender: FDA-Public Use
  Company Number: US-AMGEN-USASP2024032539

PATIENT
  Age: 16 Year
  Sex: Male

DRUGS (1)
  1. PROLIA [Suspect]
     Active Substance: DENOSUMAB
     Indication: Bone giant cell tumour
     Dosage: 120 MILLIGRAM, QMO
     Route: 058
     Dates: start: 201709, end: 201908

REACTIONS (2)
  - Osteosarcoma [Unknown]
  - Off label use [Unknown]

NARRATIVE: CASE EVENT DATE: 20170901
